FAERS Safety Report 5078723-3 (Version None)
Quarter: 2006Q3

REPORT INFORMATION
  Report Type: 
  Country: None (occurrence: None)
  Receive Date: 20060809
  Receipt Date: 20060809
  Transmission Date: 20061208
  Serious: No
  Sender: FDA-Public Use
  Company Number: None

PATIENT
  Age: 39 Year
  Sex: Male

DRUGS (2)
  1. CYMBALTA [Suspect]
     Indication: HEADACHE
     Dosage: 30 QD PO
     Route: 048
     Dates: start: 20060731
  2. CYMBALTA [Suspect]
     Indication: HEADACHE
     Dosage: 30 QD PO
     Route: 048
     Dates: start: 20060801

REACTIONS (3)
  - DIZZINESS [None]
  - DYSTONIA [None]
  - NAUSEA [None]
